FAERS Safety Report 7383331-5 (Version None)
Quarter: 2011Q1

REPORT INFORMATION
  Report Type: 
  Country: None (occurrence: None)
  Receive Date: 20110330
  Receipt Date: 20110316
  Transmission Date: 20110831
  Serious: Yes (Other)
  Sender: FDA-Public Use
  Company Number: NL-JNJFOC-20110311363

PATIENT

DRUGS (11)
  1. ALL OTHER THERAPEUTIC PRODUCTS [Concomitant]
  2. LASIX [Concomitant]
  3. BUSCOPAN [Concomitant]
  4. LANOXIN [Concomitant]
  5. ALL OTHER THERAPEUTIC PRODUCTS [Concomitant]
  6. MEBUTAN [Concomitant]
  7. TRAMAL [Suspect]
     Indication: PRODUCT USED FOR UNKNOWN INDICATION
     Route: 065
  8. SINTROM [Interacting]
     Indication: PRODUCT USED FOR UNKNOWN INDICATION
     Route: 048
  9. DICETEL [Concomitant]
  10. ASCAL [Concomitant]
  11. ARTHROTEC [Concomitant]

REACTIONS (2)
  - INTERNATIONAL NORMALISED RATIO INCREASED [None]
  - DRUG INTERACTION [None]
